FAERS Safety Report 5584672-4 (Version None)
Quarter: 2008Q1

REPORT INFORMATION
  Report Type: 
  Country: None (occurrence: None)
  Receive Date: 20080103
  Receipt Date: 20071217
  Transmission Date: 20080703
  Serious: Yes (Hospitalization)
  Sender: FDA-Public Use
  Company Number: DSA_31095_2007

PATIENT
  Age: 64 Year
  Sex: Male

DRUGS (14)
  1. ENALAPRIL MALEATE AND HYDROCHLOROTHIAZIDE [Suspect]
     Indication: HYPERTONIA
     Dosage: DF, ORAL
     Route: 048
     Dates: end: 20071104
  2. BYETTA [Suspect]
     Indication: DIABETES MELLITUS
     Dosage: 5 UG, BID
     Dates: start: 20071026, end: 20071130
  3. ATACAND [Suspect]
     Indication: HYPERTONIA
     Dosage: 4 MG QD,8 MG QD, 4 MG QD
     Dates: end: 20071025
  4. ATACAND [Suspect]
     Indication: HYPERTONIA
     Dosage: 4 MG QD,8 MG QD, 4 MG QD
     Dates: start: 20071026, end: 20071104
  5. ATACAND [Suspect]
     Indication: HYPERTONIA
     Dosage: 4 MG QD,8 MG QD, 4 MG QD
     Dates: start: 20071111
  6. NEXIUM [Concomitant]
  7. PRAVACHOL [Concomitant]
  8. BEHEPAN [Concomitant]
  9. LASIX [Concomitant]
  10. TROMBYL [Concomitant]
  11. PLAVIX [Concomitant]
  12. NOVORAPID [Concomitant]
  13. METFORMIN [Concomitant]
  14. LEVEMIR [Concomitant]

REACTIONS (4)
  - FATIGUE [None]
  - NAUSEA [None]
  - RENAL FAILURE [None]
  - VOMITING [None]
